FAERS Safety Report 17726935 (Version 3)
Quarter: 2022Q4

REPORT INFORMATION
  Report Type: Spontaneous
  Country: US (occurrence: US)
  Receive Date: 20200430
  Receipt Date: 20221021
  Transmission Date: 20230113
  Serious: No
  Sender: FDA-Public Use
  Company Number: US-DRREDDYS-USA/USA/20/0122356

PATIENT
  Age: 61 Year
  Sex: Female
  Weight: 56.25 kg

DRUGS (2)
  1. SUMATRIPTAN [Suspect]
     Active Substance: SUMATRIPTAN
     Indication: Migraine
     Dosage: 6 MG/0.5 ML
     Route: 058
     Dates: start: 2019
  2. SUMATRIPTAN [Suspect]
     Active Substance: SUMATRIPTAN
     Dosage: 6 MG/0.5 ML

REACTIONS (3)
  - Injection site bruising [Unknown]
  - Product dose omission issue [Unknown]
  - Product quality issue [Unknown]
